FAERS Safety Report 22329076 (Version 1)
Quarter: 2023Q2

REPORT INFORMATION
  Report Type: Spontaneous
  Country: US (occurrence: None)
  Receive Date: 20230517
  Receipt Date: 20230517
  Transmission Date: 20230722
  Serious: Yes (Other)
  Sender: FDA-Public Use
  Company Number: US-FARMAPROD-202304-1170

PATIENT
  Age: 93 Year
  Sex: Female
  Weight: 48.578 kg

DRUGS (22)
  1. OXERVATE [Suspect]
     Active Substance: CENEGERMIN-BKBJ
     Indication: Neurotrophic keratopathy
     Route: 047
     Dates: start: 20230414, end: 20230418
  2. METHENAMINE HIPPURATE [Concomitant]
     Active Substance: METHENAMINE HIPPURATE
  3. ACETAMINOPHEN [Concomitant]
     Active Substance: ACETAMINOPHEN
  4. VITAMINS [Concomitant]
     Active Substance: VITAMINS
  5. MIRALAX [Concomitant]
     Active Substance: POLYETHYLENE GLYCOL 3350
  6. TRAVATAN Z [Concomitant]
     Active Substance: TRAVOPROST
  7. IBUPROFEN [Concomitant]
     Active Substance: IBUPROFEN
  8. METOPROLOL TARTRATE [Concomitant]
     Active Substance: METOPROLOL TARTRATE
  9. SERTRALINE HYDROCHLORIDE [Concomitant]
     Active Substance: SERTRALINE HYDROCHLORIDE
  10. ALLOPURINOL [Concomitant]
     Active Substance: ALLOPURINOL
  11. LEVOTHYROXINE SODIUM [Concomitant]
     Active Substance: LEVOTHYROXINE SODIUM
  12. CEQUA [Concomitant]
     Active Substance: CYCLOSPORINE
     Dates: start: 20211103
  13. DICLOFENAC SODIUM [Concomitant]
     Active Substance: DICLOFENAC SODIUM
  14. TRAMADOL HCL [Concomitant]
     Active Substance: TRAMADOL HYDROCHLORIDE
  15. PHENAZOPYRIDINE HCL [Concomitant]
     Active Substance: PHENAZOPYRIDINE HYDROCHLORIDE
  16. ESTRADIOL [Concomitant]
     Active Substance: ESTRADIOL
  17. EAR DROPS [Concomitant]
  18. ALBUTEROL SULFATE [Concomitant]
     Active Substance: ALBUTEROL SULFATE
     Dosage: HYDROFLUOROALKANE AEROSOL WITH ADAPTER
  19. LIDOCAINE [Concomitant]
     Active Substance: LIDOCAINE
     Dosage: ADHESIVE PATCH
  20. OS-CAL 500-VIT D3 [Concomitant]
     Dosage: 500 MG-5 MCG
  21. REFRESH GEL [Concomitant]
     Dates: start: 20211103
  22. REFRESH TEARS [Concomitant]
     Active Substance: CARBOXYMETHYLCELLULOSE SODIUM
     Dates: start: 20211103

REACTIONS (2)
  - Eye infection bacterial [Recovered/Resolved]
  - Dacryocystitis [Unknown]

NARRATIVE: CASE EVENT DATE: 20230418
